FAERS Safety Report 19402856 (Version 1)
Quarter: 2021Q2

REPORT INFORMATION
  Report Type: Spontaneous
  Country: DE (occurrence: DE)
  Receive Date: 20210610
  Receipt Date: 20210610
  Transmission Date: 20210717
  Serious: Yes (Hospitalization, Other)
  Sender: FDA-Public Use
  Company Number: NVSC2021DE130802

PATIENT
  Age: 30 Year
  Sex: Female

DRUGS (4)
  1. CARIPRAZINE [Interacting]
     Active Substance: CARIPRAZINE
     Indication: PRODUCT USED FOR UNKNOWN INDICATION
     Dosage: 1.5 MG, QD
     Route: 065
  2. CARIPRAZINE [Interacting]
     Active Substance: CARIPRAZINE
     Dosage: 3 MG, QD (AFTER 5 DAYS)
     Route: 065
  3. QUETIAPINE. [Suspect]
     Active Substance: QUETIAPINE
     Indication: PRODUCT USED FOR UNKNOWN INDICATION
     Dosage: 300 MG, QD (AFTER 4 DAYS)
     Route: 065
  4. CARIPRAZINE [Interacting]
     Active Substance: CARIPRAZINE
     Dosage: 1.5 MG, QD
     Route: 065

REACTIONS (5)
  - Insomnia [Unknown]
  - Drug interaction [Unknown]
  - Akathisia [Recovered/Resolved]
  - Euphoric mood [Unknown]
  - Aggression [Unknown]
